FAERS Safety Report 7340903-1 (Version None)
Quarter: 2011Q1

REPORT INFORMATION
  Report Type: 
  Country: None (occurrence: None)
  Receive Date: 20110309
  Receipt Date: 20100507
  Transmission Date: 20110831
  Serious: No
  Sender: FDA-Public Use
  Company Number: US-ABBOTT-10P-163-0643520-00

PATIENT
  Sex: Female
  Weight: 29.51 kg

DRUGS (2)
  1. LUPRON DEPOT [Suspect]
     Indication: PRECOCIOUS PUBERTY
     Route: 030
     Dates: start: 20070801, end: 20100101
  2. LUPRON DEPOT-PED [Suspect]
     Indication: PRECOCIOUS PUBERTY

REACTIONS (1)
  - INCORRECT DOSE ADMINISTERED [None]
